FAERS Safety Report 6565429-4 (Version None)
Quarter: 2010Q1

REPORT INFORMATION
  Report Type: 
  Country: None (occurrence: None)
  Receive Date: 20100201
  Receipt Date: 20100121
  Transmission Date: 20100710
  Serious: Yes (Hospitalization)
  Sender: FDA-Public Use
  Company Number: PHHY2009MX51999

PATIENT
  Sex: Female

DRUGS (1)
  1. ZELMAC [Suspect]
     Indication: IRRITABLE BOWEL SYNDROME
     Dosage: 2 TABLET (6 MG) PER DAY
     Route: 048
     Dates: start: 20091001, end: 20091122

REACTIONS (4)
  - CONCOMITANT DISEASE AGGRAVATED [None]
  - GASTROOESOPHAGEAL REFLUX DISEASE [None]
  - HEPATIC PAIN [None]
  - VOMITING [None]
